FAERS Safety Report 12475994 (Version 1)
Quarter: 2016Q2

REPORT INFORMATION
  Report Type: Spontaneous
  Country: US (occurrence: US)
  Receive Date: 20160617
  Receipt Date: 20160617
  Transmission Date: 20160815
  Serious: Yes (Other)
  Sender: FDA-Public Use
  Company Number: US-PFIZER INC-2016297912

PATIENT
  Age: 58 Year
  Sex: Female
  Weight: 86 kg

DRUGS (8)
  1. METHADONE [Suspect]
     Active Substance: METHADONE HYDROCHLORIDE
     Indication: PAIN
     Dosage: 20 MG, 3X/DAY (EVERY 8 HOURS)
     Route: 048
  2. BACLOFEN. [Concomitant]
     Active Substance: BACLOFEN
     Indication: NERVE INJURY
     Dosage: 10 MG, AS NEEDED (ONE TABLET THREE OR FOUR TIMES A DAY)
     Route: 048
     Dates: start: 2007
  3. LYRICA [Suspect]
     Active Substance: PREGABALIN
     Indication: FIBROMYALGIA
     Dosage: 50 MG, 2X/DAY
     Route: 048
     Dates: start: 2007, end: 2014
  4. BACLOFEN. [Concomitant]
     Active Substance: BACLOFEN
     Indication: MUSCLE SPASMS
  5. DALIUM [Concomitant]
     Indication: CARDIAC DISORDER
     Dosage: 10 MG, 4X/DAY
     Route: 048
     Dates: start: 2007
  6. HYDROCHLOROTHIAZIDE. [Concomitant]
     Active Substance: HYDROCHLOROTHIAZIDE
     Indication: CARDIAC DISORDER
     Dosage: 25 MG, 1X/DAY
     Route: 048
     Dates: start: 2007
  7. OXYCODONE [Concomitant]
     Active Substance: OXYCODONE
     Indication: PAIN
     Dosage: 30 MG, TABLET, ONE TABLET EVERY 4 TO 6 HOURS AS NEEDED, MAXIMUM 6 TABLETS DIALY
     Route: 048
  8. MICARDIS HCT [Concomitant]
     Active Substance: HYDROCHLOROTHIAZIDE\TELMISARTAN
     Indication: BLOOD PRESSURE ABNORMAL
     Dosage: (HYDROCHLOROTHIAZIDE 80 MG/ TELMISARTAN 25 MG), 1X/DAY
     Route: 048
     Dates: start: 2005

REACTIONS (2)
  - Seizure [Recovered/Resolved]
  - Pain [Recovered/Resolved]
